FAERS Safety Report 5119006-2 (Version None)
Quarter: 2006Q4

REPORT INFORMATION
  Report Type: 
  Country: None (occurrence: None)
  Receive Date: 20061002
  Receipt Date: 20060922
  Transmission Date: 20070319
  Serious: Yes (Life-Threatening, Hospitalization)
  Sender: FDA-Public Use
  Company Number: GB-ALLERGAN-0605649US

PATIENT
  Age: 15 Year
  Sex: Female

DRUGS (4)
  1. PREDNISOLONE ACETATE UNSPEC [Suspect]
  2. MESTINON [Suspect]
     Indication: MYASTHENIA GRAVIS
     Route: 048
     Dates: start: 20050920, end: 20051101
  3. OMEPRAZOLE [Suspect]
     Indication: DRUG USE FOR UNKNOWN INDICATION
  4. MINOCIN [Suspect]
     Indication: DRUG USE FOR UNKNOWN INDICATION

REACTIONS (1)
  - TOXIC EPIDERMAL NECROLYSIS [None]
